FAERS Safety Report 9103764 (Version 1)
Quarter: 2013Q1

REPORT INFORMATION
  Report Type: Spontaneous
  Country: US (occurrence: US)
  Receive Date: 20130219
  Receipt Date: 20130219
  Transmission Date: 20140127
  Serious: No
  Sender: FDA-Public Use
  Company Number: US-SANOFI-AVENTIS-2012SA062474

PATIENT
  Sex: Male

DRUGS (2)
  1. GLYBURIDE [Suspect]
     Route: 048
  2. METFORMIN [Concomitant]

REACTIONS (2)
  - Malaise [Not Recovered/Not Resolved]
  - Weight decreased [Unknown]
